FAERS Safety Report 19612676 (Version 1)
Quarter: 2021Q3

REPORT INFORMATION
  Report Type: Spontaneous
  Country: US (occurrence: US)
  Receive Date: 20210727
  Receipt Date: 20210727
  Transmission Date: 20211014
  Serious: No
  Sender: FDA-Public Use
  Company Number: US-AMGEN-USASP2021111219

PATIENT
  Age: 74 Year
  Sex: Female
  Weight: 45.35 kg

DRUGS (6)
  1. CALCIUM [Concomitant]
     Active Substance: CALCIUM
     Dosage: 1200 UNK
  2. ADVIL [Concomitant]
     Active Substance: IBUPROFEN
     Dosage: 200 MILLIGRAM, BID
  3. SYNTHROID [Concomitant]
     Active Substance: LEVOTHYROXINE SODIUM
     Dosage: UNK UNK, QD
  4. CALCIUM [Concomitant]
     Active Substance: CALCIUM
     Dosage: 1800 MILLIGRAM
  5. VIT D [COLECALCIFEROL] [Concomitant]
     Dosage: 2000 INTERNATIONAL UNIT
  6. PROLIA [Suspect]
     Active Substance: DENOSUMAB
     Indication: OSTEOPOROSIS POSTMENOPAUSAL
     Dosage: UNK
     Route: 065
     Dates: start: 20210606

REACTIONS (5)
  - Swelling [Not Recovered/Not Resolved]
  - Cough [Unknown]
  - Muscle disorder [Not Recovered/Not Resolved]
  - Arthralgia [Not Recovered/Not Resolved]
  - Back pain [Not Recovered/Not Resolved]

NARRATIVE: CASE EVENT DATE: 2021
